FAERS Safety Report 25835550 (Version 1)
Quarter: 2025Q3

REPORT INFORMATION
  Report Type: Spontaneous
  Country: US (occurrence: US)
  Receive Date: 20250923
  Receipt Date: 20250923
  Transmission Date: 20251021
  Serious: Yes (Life-Threatening, Hospitalization, Other)
  Sender: AUROBINDO
  Company Number: US-MLMSERVICE-20250905-PI634034-00270-1

PATIENT
  Age: 50 Year
  Sex: Male

DRUGS (4)
  1. PREDNISOLONE [Suspect]
     Active Substance: PREDNISOLONE
     Indication: Asthma
     Route: 048
  2. MIDAZOLAM [Concomitant]
     Active Substance: MIDAZOLAM
     Indication: Product used for unknown indication
     Route: 065
  3. VANCOMYCIN [Concomitant]
     Active Substance: VANCOMYCIN
     Indication: Product used for unknown indication
     Route: 065
  4. PIPERACILLIN SODIUM\TAZOBACTAM SODIUM [Concomitant]
     Active Substance: PIPERACILLIN SODIUM\TAZOBACTAM SODIUM
     Indication: Product used for unknown indication
     Route: 065

REACTIONS (13)
  - Meningitis listeria [Recovering/Resolving]
  - Shock [Recovering/Resolving]
  - Diabetic ketoacidosis [Unknown]
  - Metabolic acidosis [Recovering/Resolving]
  - Hypertriglyceridaemia [Unknown]
  - Diabetes mellitus [Unknown]
  - Renal impairment [Recovering/Resolving]
  - Encephalopathy [Recovering/Resolving]
  - Hypertension [Recovering/Resolving]
  - Hyponatraemia [Recovering/Resolving]
  - Obesity [Unknown]
  - Amnesia [Recovering/Resolving]
  - Intentional product misuse [Recovering/Resolving]
